FAERS Safety Report 4353695-5 (Version None)
Quarter: 2004Q2

REPORT INFORMATION
  Report Type: 
  Country: None (occurrence: None)
  Receive Date: 20040430
  Receipt Date: 20040415
  Transmission Date: 20050107
  Serious: Yes (Hospitalization)
  Sender: FDA-Public Use
  Company Number: US-JNJFOC-20040404665

PATIENT

DRUGS (2)
  1. ULTRAM (TRAMADOL HYDROCHLORIDE) TABLETS [Suspect]
     Dosage: THREE TABLETS
  2. HYDROCODONE (HYDROCODONE) [Suspect]

REACTIONS (1)
  - INTERVERTEBRAL DISC PROTRUSION [None]
